FAERS Safety Report 8509194-X (Version None)
Quarter: 2012Q3

REPORT INFORMATION
  Report Type: 
  Country: None (occurrence: None)
  Receive Date: 20120713
  Receipt Date: 20120711
  Transmission Date: 20120928
  Serious: Yes (Death)
  Sender: FDA-Public Use
  Company Number: US-ROCHE-1047271

PATIENT
  Sex: Female
  Weight: 56.296 kg

DRUGS (4)
  1. OXYCODONE HCL [Concomitant]
     Indication: PAIN
     Route: 048
  2. TEGRETOL [Concomitant]
     Indication: CONVULSION
     Route: 048
  3. XELODA [Suspect]
     Indication: BREAST CANCER METASTATIC
     Route: 048
     Dates: start: 20120303
  4. XELODA [Suspect]
     Indication: METASTASES TO BONE

REACTIONS (4)
  - FLATULENCE [None]
  - CONSTIPATION [None]
  - DEATH [None]
  - ABDOMINAL PAIN [None]
